FAERS Safety Report 9112964 (Version 1)
Quarter: 2013Q1

REPORT INFORMATION
  Report Type: Spontaneous
  Country: CO (occurrence: CO)
  Receive Date: 20130211
  Receipt Date: 20130211
  Transmission Date: 20140127
  Serious: Yes (Death)
  Sender: FDA-Public Use
  Company Number: CO-ASTRAZENECA-2013SE08667

PATIENT
  Age: 5 Day
  Sex: Female
  Weight: 7 kg

DRUGS (1)
  1. SYNAGIS [Suspect]
     Indication: BRONCHOPULMONARY DYSPLASIA
     Route: 030
     Dates: start: 20130123, end: 20130123

REACTIONS (3)
  - Intraventricular haemorrhage neonatal [Fatal]
  - Respiratory failure [Fatal]
  - Cardio-respiratory arrest [Fatal]
